FAERS Safety Report 8026499-X (Version None)
Quarter: 2012Q1

REPORT INFORMATION
  Report Type: 
  Country: None (occurrence: None)
  Receive Date: 20120106
  Receipt Date: 20111226
  Transmission Date: 20120608
  Serious: Yes (Hospitalization)
  Sender: FDA-Public Use
  Company Number: JP-MYLANLABS-2012S1000158

PATIENT
  Age: 78 Year
  Sex: Female

DRUGS (2)
  1. EPIRUBICIN [Suspect]
     Indication: HEPATIC NEOPLASM MALIGNANT
     Route: 013
     Dates: start: 20111207
  2. TSU-68 [Suspect]
     Indication: HEPATIC NEOPLASM MALIGNANT
     Dates: start: 20111213

REACTIONS (1)
  - LIVER ABSCESS [None]
